FAERS Safety Report 6894214-9 (Version None)
Quarter: 2010Q3

REPORT INFORMATION
  Report Type: 
  Country: None (occurrence: None)
  Receive Date: 20100708
  Receipt Date: 20091224
  Transmission Date: 20110219
  Serious: Yes (Other)
  Sender: FDA-Public Use
  Company Number: 2009296345

PATIENT
  Age: 60 Year

DRUGS (6)
  1. CHANTIX [Suspect]
     Dosage: 1 MG, 2X/DAY
     Dates: start: 20080201, end: 20080301
  2. MAXZIDE [Concomitant]
  3. PROZAC [Concomitant]
  4. ALBUTEROL [Concomitant]
  5. QVAR [Concomitant]
  6. THEOPHYLLINE [Concomitant]

REACTIONS (6)
  - AGITATION [None]
  - ANION GAP DECREASED [None]
  - BLOOD CREATININE DECREASED [None]
  - BLOOD GLUCOSE INCREASED [None]
  - HYPOKALAEMIA [None]
  - MOOD ALTERED [None]
